FAERS Safety Report 5096774-X (Version None)
Quarter: 2006Q3

REPORT INFORMATION
  Report Type: 
  Country: None (occurrence: None)
  Receive Date: 20060831
  Receipt Date: 20060818
  Transmission Date: 20061208
  Serious: Yes (Death)
  Sender: FDA-Public Use
  Company Number: 2005078631

PATIENT
  Age: 58 Year
  Sex: Female
  Weight: 80 kg

DRUGS (6)
  1. BEXTRA [Suspect]
     Indication: PAIN IN EXTREMITY
     Dosage: 10 MG (10 MG, 1 IN 1 D)
     Dates: start: 20030429, end: 20030508
  2. VIOXX [Suspect]
     Indication: PAIN
     Dosage: 25 MG (25 MG, 1 IN 1 D)
     Dates: start: 20030429, end: 20030508
  3. ASPIRIN [Concomitant]
  4. TRAMADOL HCL [Concomitant]
  5. ACTIVELLA [Concomitant]
  6. SULINDAC [Concomitant]

REACTIONS (10)
  - CARDIAC FAILURE CONGESTIVE [None]
  - CARDIO-RESPIRATORY ARREST [None]
  - ELECTROMECHANICAL DISSOCIATION [None]
  - FALL [None]
  - HEAD INJURY [None]
  - HYPERTENSION [None]
  - LACERATION [None]
  - MALAISE [None]
  - PULMONARY EMBOLISM [None]
  - THERAPY NON-RESPONDER [None]
